FAERS Safety Report 6251463-0 (Version None)
Quarter: 2009Q2

REPORT INFORMATION
  Report Type: 
  Country: None (occurrence: None)
  Receive Date: 20090630
  Receipt Date: 20090226
  Transmission Date: 20091009
  Serious: Yes (Other)
  Sender: FDA-Public Use
  Company Number: PHHY2009SE24954

PATIENT
  Sex: Female

DRUGS (2)
  1. PRAVIDEL [Suspect]
     Dosage: UNK
     Route: 048
     Dates: start: 19880101
  2. PRAVIDEL [Suspect]
     Dosage: UNK
     Route: 048
     Dates: start: 19910101, end: 19920101

REACTIONS (1)
  - THROMBOCYTOPENIA [None]
